FAERS Safety Report 17523990 (Version 2)
Quarter: 2020Q1

REPORT INFORMATION
  Report Type: Spontaneous
  Country: DE (occurrence: DE)
  Receive Date: 20200311
  Receipt Date: 20200317
  Transmission Date: 20200409
  Serious: Yes (Other)
  Sender: FDA-Public Use
  Company Number: DE-PFIZER INC-2020097484

PATIENT

DRUGS (1)
  1. MISOPROSTOL. [Suspect]
     Active Substance: MISOPROSTOL
     Indication: LABOUR INDUCTION
     Dosage: THREE DOSES OF MISOPROSTOL (DOSAGE UNKNOWN)
     Route: 064
     Dates: start: 20180926, end: 20180926

REACTIONS (5)
  - Foetal distress syndrome [Unknown]
  - Asynclitic presentation [Unknown]
  - Foetal exposure during delivery [Unknown]
  - Foetal heart rate decreased [Unknown]
  - Apgar score low [Unknown]

NARRATIVE: CASE EVENT DATE: 201809
